FAERS Safety Report 6158742-6 (Version None)
Quarter: 2009Q2

REPORT INFORMATION
  Report Type: 
  Country: None (occurrence: None)
  Receive Date: 20090417
  Receipt Date: 20090410
  Transmission Date: 20091009
  Serious: Yes (Hospitalization)
  Sender: FDA-Public Use
  Company Number: A0779055A

PATIENT
  Age: 44 Year
  Sex: Female
  Weight: 85 kg

DRUGS (10)
  1. AVANDIA [Suspect]
     Indication: DIABETES MELLITUS
     Dosage: 8MG PER DAY
     Route: 048
     Dates: start: 20030901, end: 20050901
  2. ACTOS [Concomitant]
  3. ZANTAC [Concomitant]
  4. FAMOTIDINE [Concomitant]
  5. ADVAIR HFA [Concomitant]
  6. LIPITOR [Concomitant]
  7. GLUCOPHAGE [Concomitant]
  8. ULTRAM [Concomitant]
  9. PREVACID [Concomitant]
  10. COMBIVENT [Concomitant]

REACTIONS (1)
  - MYOCARDIAL INFARCTION [None]
